FAERS Safety Report 25307366 (Version 1)
Quarter: 2025Q2

REPORT INFORMATION
  Report Type: Spontaneous
  Country: US (occurrence: US)
  Receive Date: 20250513
  Receipt Date: 20250513
  Transmission Date: 20250716
  Serious: Yes (Death, Hospitalization)
  Sender: ANI
  Company Number: US-ANIPHARMA-2025-US-022925

PATIENT
  Age: 83 Year
  Sex: Female

DRUGS (1)
  1. CORTICOTROPIN [Suspect]
     Active Substance: CORTICOTROPIN
     Indication: Renal disorder
     Route: 030
     Dates: start: 20240809

REACTIONS (4)
  - Abdominal discomfort [Unknown]
  - Functional gastrointestinal disorder [Not Recovered/Not Resolved]
  - Colon operation [Fatal]
  - Contraindicated product administered [Recovered/Resolved]

NARRATIVE: CASE EVENT DATE: 20240809
